FAERS Safety Report 8048947-1 (Version None)
Quarter: 2012Q1

REPORT INFORMATION
  Report Type: 
  Country: None (occurrence: None)
  Receive Date: 20120111
  Receipt Date: 20111227
  Transmission Date: 20120608
  Serious: Yes (Death)
  Sender: FDA-Public Use
  Company Number: 2012VX000019

PATIENT
  Age: 20 Year
  Sex: Female

DRUGS (3)
  1. FENTANYL [Suspect]
     Indication: PRODUCT USED FOR UNKNOWN INDICATION
  2. COCAINE [Suspect]
     Indication: PRODUCT USED FOR UNKNOWN INDICATION
     Dosage: INH
     Route: 055
  3. DIAZEPAM [Suspect]
     Indication: PRODUCT USED FOR UNKNOWN INDICATION

REACTIONS (4)
  - TOXICITY TO VARIOUS AGENTS [None]
  - DRUG ABUSE [None]
  - CARDIAC ARREST [None]
  - RESPIRATORY ARREST [None]
